FAERS Safety Report 7611944-1 (Version None)
Quarter: 2011Q3

REPORT INFORMATION
  Report Type: 
  Country: None (occurrence: None)
  Receive Date: 20110715
  Receipt Date: 20110712
  Transmission Date: 20111222
  Serious: Yes (Hospitalization)
  Sender: FDA-Public Use
  Company Number: JP-EISAI INC-E2090-01659-SPO-JP

PATIENT
  Sex: Male

DRUGS (9)
  1. ZONISAMIDE [Suspect]
     Route: 048
     Dates: start: 20110123, end: 20110304
  2. PREDNISOLONE [Concomitant]
     Route: 048
     Dates: start: 20110301, end: 20110411
  3. PROTECADIN [Suspect]
     Indication: GASTRITIS
     Route: 048
     Dates: start: 20110304, end: 20110312
  4. PREDNISOLONE [Concomitant]
     Route: 048
     Dates: start: 20110216, end: 20110301
  5. SULFAMETHOXAZOLE [Concomitant]
     Route: 048
     Dates: start: 20110217, end: 20110304
  6. PREDNISOLONE [Concomitant]
     Route: 048
     Dates: start: 20110412, end: 20110614
  7. LANSOPRAZOLE [Concomitant]
     Route: 048
     Dates: start: 20110123, end: 20110304
  8. LIVALO [Concomitant]
     Route: 048
     Dates: start: 20110217, end: 20110304
  9. MAGMITT [Concomitant]
     Route: 048
     Dates: start: 20110123, end: 20110304

REACTIONS (2)
  - DRUG RASH WITH EOSINOPHILIA AND SYSTEMIC SYMPTOMS [None]
  - AGRANULOCYTOSIS [None]
